FAERS Safety Report 7498828-7 (Version None)
Quarter: 2011Q2

REPORT INFORMATION
  Report Type: 
  Country: None (occurrence: None)
  Receive Date: 20110516
  Receipt Date: 20110510
  Transmission Date: 20111010
  Serious: Yes (Hospitalization, Other)
  Sender: FDA-Public Use
  Company Number: 20119955

PATIENT
  Sex: Male

DRUGS (1)
  1. LIORESAL [Suspect]
     Indication: MUSCLE SPASTICITY
     Dosage: 1,200 MCG, DAILY, INTRATHECAL
     Route: 037

REACTIONS (5)
  - DEVICE KINK [None]
  - MUSCLE SPASTICITY [None]
  - IMPLANT SITE EFFUSION [None]
  - THERAPEUTIC RESPONSE DECREASED [None]
  - DEVICE FAILURE [None]
